FAERS Safety Report 11233903 (Version 1)
Quarter: 2015Q3

REPORT INFORMATION
  Report Type: Spontaneous
  Country: GR (occurrence: GR)
  Receive Date: 20150702
  Receipt Date: 20150702
  Transmission Date: 20151125
  Serious: Yes (Death, Hospitalization, Other)
  Sender: FDA-Public Use
  Company Number: GR-TEVA-573817ISR

PATIENT
  Age: 82 Year
  Sex: Female

DRUGS (5)
  1. HYDROCHLOROTHIAZIDE + QUINAPRIL [Concomitant]
     Dosage: HYDROCHLOROTHIAZIDE 12.5MG + QUINAPRIL 20MG PER DAY
     Route: 065
  2. CITALOPRAM [Concomitant]
     Active Substance: CITALOPRAM HYDROBROMIDE
     Dosage: 40 MILLIGRAM DAILY;
     Route: 065
  3. OLANZAPINE. [Suspect]
     Active Substance: OLANZAPINE
     Dosage: 5 MILLIGRAM DAILY; AT STABLE DOSES
     Route: 065
  4. LEVODOPA + BENSERAZIDE [Concomitant]
     Dosage: LEVODOPA 50MG  + BENSERAZIDE 200MG PER DAY
     Route: 065
  5. DONEPEZIL. [Concomitant]
     Active Substance: DONEPEZIL
     Dosage: 10 MILLIGRAM DAILY;
     Route: 065

REACTIONS (2)
  - Cardiac arrest [Fatal]
  - Neuroleptic malignant syndrome [Recovering/Resolving]
